FAERS Safety Report 6580695-7 (Version None)
Quarter: 2010Q1

REPORT INFORMATION
  Report Type: 
  Country: None (occurrence: None)
  Receive Date: 20100212
  Receipt Date: 20100201
  Transmission Date: 20100710
  Serious: Yes (Hospitalization)
  Sender: FDA-Public Use
  Company Number: FR-NAPPMUNDI-GBR-2010-0006107

PATIENT
  Sex: Male

DRUGS (18)
  1. OXYCONTIN [Suspect]
     Indication: BACK PAIN
     Dosage: 120 MG, DAILY
     Route: 048
     Dates: start: 20091113, end: 20091207
  2. OXYCONTIN [Suspect]
     Indication: CHEST PAIN
  3. OXYNORM CAPSULES 10 MG [Suspect]
     Indication: BACK PAIN
     Dosage: 10 MG, ONE TO THREE TIMES DAILY
     Route: 048
     Dates: start: 20091123, end: 20091203
  4. OXYNORM CAPSULES 10 MG [Suspect]
     Indication: CHEST PAIN
  5. RIVOTRIL [Suspect]
     Indication: BACK PAIN
     Dosage: 2.5 MG/ML, (20 DROPS)
     Route: 048
     Dates: start: 20091118, end: 20091206
  6. RIVOTRIL [Suspect]
     Indication: CHEST PAIN
  7. LYRICA [Suspect]
     Indication: BACK PAIN
     Dosage: 75 MG, DAILY
     Route: 048
     Dates: start: 20091116, end: 20091206
  8. LYRICA [Suspect]
     Indication: CHEST PAIN
  9. LAROXYL [Suspect]
     Indication: BACK PAIN
     Dosage: 75 MG, DAILY
     Route: 048
     Dates: start: 20091113, end: 20091206
  10. LAROXYL [Suspect]
     Indication: CHEST PAIN
  11. AMOXICILLINE/ACIDE CLAVULANIQUE ARROW [Concomitant]
     Indication: DRUG USE FOR UNKNOWN INDICATION
     Dosage: 2 GRAM, TID
  12. DOLIPRANE [Concomitant]
     Indication: DRUG USE FOR UNKNOWN INDICATION
     Dosage: 4 GRAM, DAILY
  13. INNOHEP                            /00889602/ [Concomitant]
     Indication: DRUG USE FOR UNKNOWN INDICATION
     Dosage: 14000 UL, UNK
  14. DILTIAZEM HCL [Concomitant]
     Indication: DRUG USE FOR UNKNOWN INDICATION
     Dosage: 60 MG, UNK
  15. DUPHALAC [Concomitant]
     Indication: DRUG USE FOR UNKNOWN INDICATION
     Dosage: 2 TSP, DAILY
  16. PREVISCAN                          /00261401/ [Concomitant]
     Indication: DRUG USE FOR UNKNOWN INDICATION
     Dosage: 25 MG, DAILY
  17. SIMVASTATIN [Concomitant]
     Indication: DRUG USE FOR UNKNOWN INDICATION
     Dosage: 20 MG, DAILY
  18. SYMBICORT [Concomitant]
     Indication: DRUG USE FOR UNKNOWN INDICATION
     Dosage: 400/12 UG/DOSE 4 TIMES DAILY
     Route: 055

REACTIONS (5)
  - AGITATION [None]
  - CONFUSIONAL STATE [None]
  - DELIRIUM [None]
  - HALLUCINATION [None]
  - URINARY RETENTION [None]
